FAERS Safety Report 5709753-3 (Version None)
Quarter: 2008Q2

REPORT INFORMATION
  Report Type: 
  Country: None (occurrence: None)
  Receive Date: 20080418
  Receipt Date: 20080407
  Transmission Date: 20081010
  Serious: Yes (Hospitalization, Other)
  Sender: FDA-Public Use
  Company Number: US-AMGEN-QUU273225

PATIENT
  Sex: Male

DRUGS (1)
  1. ENBREL [Suspect]
     Indication: RHEUMATOID ARTHRITIS
     Route: 058
     Dates: start: 20011001, end: 20040301

REACTIONS (9)
  - ASTHENIA [None]
  - FUNGAL INFECTION [None]
  - JOINT ARTHROPLASTY [None]
  - MUSCULOSKELETAL DISORDER [None]
  - POSTOPERATIVE WOUND INFECTION [None]
  - RHEUMATOID ARTHRITIS [None]
  - SKIN LESION [None]
  - STAPHYLOCOCCAL INFECTION [None]
  - WEIGHT DECREASED [None]
